FAERS Safety Report 6089307-2 (Version None)
Quarter: 2009Q1

REPORT INFORMATION
  Report Type: 
  Country: None (occurrence: None)
  Receive Date: 20090224
  Receipt Date: 20090217
  Transmission Date: 20090719
  Serious: Yes (Hospitalization)
  Sender: FDA-Public Use
  Company Number: US-ELI_LILLY_AND_COMPANY-US200902004130

PATIENT
  Sex: Male

DRUGS (11)
  1. BYETTA [Suspect]
     Indication: TYPE 2 DIABETES MELLITUS
     Dosage: 5 UG, 2/D
     Route: 058
     Dates: start: 20060101, end: 20090101
  2. LASIX [Concomitant]
     Dosage: 40 MG, DAILY (1/D)
     Route: 048
  3. FOLIC ACID [Concomitant]
     Dosage: 1 MG, DAILY (1/D)
     Route: 048
     Dates: start: 20070101
  4. TRICOR [Concomitant]
     Indication: BLOOD CHOLESTEROL INCREASED
     Dosage: 48 MG, DAILY (1/D)
     Route: 048
     Dates: start: 20081001
  5. FENOFIBRATE [Concomitant]
     Indication: BLOOD CHOLESTEROL INCREASED
     Dosage: 160 MG, DAILY (1/D)
     Route: 048
     Dates: end: 20081001
  6. PLAVIX [Concomitant]
     Dosage: 75 MG, DAILY (1/D)
     Route: 048
     Dates: start: 20081001
  7. ZETIA [Concomitant]
     Indication: BLOOD CHOLESTEROL INCREASED
     Dosage: 10 MG, DAILY (1/D)
     Route: 048
  8. OMEPRAZOLE [Concomitant]
     Indication: GASTRIC DISORDER
     Dosage: 20 MG, DAILY (1/D)
     Route: 048
  9. NITROGLYCERIN [Concomitant]
     Dosage: 9 MG, 2/D
     Route: 060
  10. POTASSIUM CHLORIDE [Concomitant]
     Dosage: 20 MG, DAILY (1/D)
     Route: 048
     Dates: end: 20090101
  11. ALBUTEROL [Concomitant]
     Indication: CHRONIC OBSTRUCTIVE PULMONARY DISEASE
     Dosage: UNK, 4/D
     Route: 055
     Dates: start: 19990101

REACTIONS (12)
  - ABDOMINAL PAIN UPPER [None]
  - CLOSTRIDIUM DIFFICILE COLITIS [None]
  - CONSTIPATION [None]
  - DEHYDRATION [None]
  - DIARRHOEA [None]
  - EAR INFECTION [None]
  - EYE INFECTION [None]
  - HOSPITALISATION [None]
  - KIDNEY INFECTION [None]
  - LUNG DISORDER [None]
  - LUNG INFECTION [None]
  - PRODUCTIVE COUGH [None]
